FAERS Safety Report 12972042 (Version 2)
Quarter: 2016Q4

REPORT INFORMATION
  Report Type: Spontaneous
  Country: US (occurrence: US)
  Receive Date: 20161124
  Receipt Date: 20161202
  Transmission Date: 20170207
  Serious: Yes (Other)
  Sender: FDA-Public Use
  Company Number: US-TEVA-687742USA

PATIENT
  Age: 8 Year
  Sex: Female
  Weight: 21.34 kg

DRUGS (1)
  1. FEXOFENADINE HYDROCHLORIDE ORAL SUSPENSION, 30 MG/5 ML [Suspect]
     Active Substance: FEXOFENADINE HYDROCHLORIDE
     Indication: HYPERSENSITIVITY
     Dosage: 30 MG/5 ML
     Route: 065
     Dates: start: 20160812, end: 20160812

REACTIONS (3)
  - Anaphylactic reaction [Recovered/Resolved]
  - Hypersensitivity [Recovered/Resolved]
  - Throat tightness [Recovering/Resolving]

NARRATIVE: CASE EVENT DATE: 20160812
